FAERS Safety Report 18986904 (Version 1)
Quarter: 2021Q1

REPORT INFORMATION
  Report Type: Spontaneous
  Country: US (occurrence: US)
  Receive Date: 20210308
  Receipt Date: 20210308
  Transmission Date: 20210420
  Serious: No
  Sender: FDA-Public Use
  Company Number: None

PATIENT
  Age: 51 Year
  Sex: Male
  Weight: 120.2 kg

DRUGS (1)
  1. CLINDAMYCIN (CLINDAMYCIN HCL 300MG CAP) [Suspect]
     Active Substance: CLINDAMYCIN HYDROCHLORIDE
     Dates: start: 20201108, end: 20201117

REACTIONS (4)
  - Erythema multiforme [None]
  - Urticaria [None]
  - Pruritus [None]
  - Rash [None]

NARRATIVE: CASE EVENT DATE: 20201108
